FAERS Safety Report 15328697 (Version 1)
Quarter: 2018Q3

REPORT INFORMATION
  Report Type: Report from Study
  Country: KR (occurrence: KR)
  Receive Date: 20180829
  Receipt Date: 20180829
  Transmission Date: 20181010
  Serious: Yes (Death, Hospitalization)
  Sender: FDA-Public Use
  Company Number: KR-BAXTER-2018BAX022326

PATIENT
  Age: 40 Year
  Sex: Female
  Weight: 39 kg

DRUGS (3)
  1. PHYSIONEAL 2.5% [Suspect]
     Active Substance: CALCIUM CHLORIDE\DEXTROSE\MAGNESIUM CHLORIDE\SODIUM CHLORIDE SOLUTION
     Indication: END STAGE RENAL DISEASE
     Route: 033
     Dates: start: 20080223, end: 20180816
  2. PHYSIONEAL 4.25% [Suspect]
     Active Substance: CALCIUM CHLORIDE\DEXTROSE\MAGNESIUM CHLORIDE\SODIUM CHLORIDE SOLUTION
     Indication: END STAGE RENAL DISEASE
     Route: 033
     Dates: start: 20080223, end: 20180816
  3. EXTRANEAL [Suspect]
     Active Substance: CALCIUM CHLORIDE\ICODEXTRIN\MAGNESIUM CHLORIDE\SODIUM CHLORIDE\SODIUM LACTATE
     Indication: END STAGE RENAL DISEASE
     Route: 033
     Dates: start: 20080223, end: 20180816

REACTIONS (3)
  - Blood pressure decreased [Unknown]
  - General physical health deterioration [Unknown]
  - Cardiac arrest [Fatal]

NARRATIVE: CASE EVENT DATE: 201808
